FAERS Safety Report 23792273 (Version 2)
Quarter: 2024Q2

REPORT INFORMATION
  Report Type: Spontaneous
  Country: SG (occurrence: None)
  Receive Date: 20240429
  Receipt Date: 20240521
  Transmission Date: 20240716
  Serious: Yes (Other)
  Sender: FDA-Public Use
  Company Number: SG-ROCHE-3550638

PATIENT
  Sex: Female

DRUGS (1)
  1. PERJETA [Suspect]
     Active Substance: PERTUZUMAB
     Indication: Breast cancer
     Route: 065

REACTIONS (12)
  - Neoplasm malignant [Unknown]
  - Pruritus [Unknown]
  - Ill-defined disorder [Unknown]
  - Heart rate increased [Unknown]
  - Syncope [Unknown]
  - Nail disorder [Unknown]
  - Memory impairment [Unknown]
  - Herpes zoster [Unknown]
  - Varicella [Unknown]
  - Bone disorder [Unknown]
  - Anaemia [Unknown]
  - Abscess [Unknown]
